FAERS Safety Report 19817263 (Version 73)
Quarter: 2025Q2

REPORT INFORMATION
  Report Type: Report from Study
  Country: CO (occurrence: CO)
  Receive Date: 20210910
  Receipt Date: 20250627
  Transmission Date: 20250717
  Serious: Yes (Other)
  Sender: TAKEDA
  Company Number: CO-TAKEDA-CO202012660

PATIENT
  Age: 3 Year
  Sex: Male
  Weight: 30 kg

DRUGS (14)
  1. IDURSULFASE [Suspect]
     Active Substance: IDURSULFASE
     Indication: Mucopolysaccharidosis II
     Dosage: 3 DOSAGE FORM, QD
     Dates: start: 20171104
  2. IDURSULFASE [Suspect]
     Active Substance: IDURSULFASE
     Indication: Mucopolysaccharidosis VII
     Dosage: 0.5 MILLIGRAM/KILOGRAM, 1/WEEK
     Dates: start: 20181031
  3. IDURSULFASE [Suspect]
     Active Substance: IDURSULFASE
     Indication: Mucopolysaccharidosis
     Dosage: 12 MILLIGRAM, 1/WEEK
     Dates: start: 20220721
  4. IDURSULFASE [Suspect]
     Active Substance: IDURSULFASE
     Dosage: 6 MILLIGRAM, 1/WEEK
  5. IDURSULFASE [Suspect]
     Active Substance: IDURSULFASE
     Dosage: 6 MILLIGRAM, 1/WEEK
  6. IDURSULFASE [Suspect]
     Active Substance: IDURSULFASE
     Dosage: 11 MILLIGRAM, 1/WEEK
  7. IDURSULFASE [Suspect]
     Active Substance: IDURSULFASE
     Dosage: 12 MILLIGRAM, 1/WEEK
  8. IDURSULFASE [Suspect]
     Active Substance: IDURSULFASE
     Dosage: 14 MILLIGRAM, 1/WEEK
  9. IDURSULFASE [Suspect]
     Active Substance: IDURSULFASE
     Dosage: 14.5 MILLIGRAM, 1/WEEK
  10. IDURSULFASE [Suspect]
     Active Substance: IDURSULFASE
     Dosage: 15 MILLIGRAM, Q2WEEKS
  11. IDURSULFASE [Suspect]
     Active Substance: IDURSULFASE
     Dosage: 15 MILLIGRAM, 1/WEEK
  12. COVID-19 VACCINE NOS [Suspect]
     Active Substance: COVID-19 VACCINE
     Indication: COVID-19 immunisation
  13. LORATADINE [Concomitant]
     Active Substance: LORATADINE
     Indication: Prophylaxis
  14. ACETAMINOPHEN [Concomitant]
     Active Substance: ACETAMINOPHEN
     Indication: Prophylaxis

REACTIONS (85)
  - Hemiplegia [Unknown]
  - COVID-19 [Recovering/Resolving]
  - Wound haemorrhage [Recovering/Resolving]
  - Influenza [Recovered/Resolved]
  - Pulmonary congestion [Recovered/Resolved]
  - Venous injury [Recovered/Resolved]
  - Aortic valve disease [Unknown]
  - Atrial septal defect [Unknown]
  - Pulmonary valve incompetence [Unknown]
  - Cardiac failure [Unknown]
  - Catheter site related reaction [Recovered/Resolved]
  - Peripheral swelling [Recovered/Resolved]
  - Discouragement [Recovered/Resolved]
  - Application site oedema [Recovered/Resolved]
  - Application site warmth [Recovered/Resolved]
  - Inflammation [Not Recovered/Not Resolved]
  - Pain in extremity [Recovering/Resolving]
  - Oedema [Not Recovered/Not Resolved]
  - Administration site inflammation [Recovered/Resolved]
  - Vomiting [Recovered/Resolved]
  - Pyrexia [Recovered/Resolved]
  - Rash macular [Recovering/Resolving]
  - Puncture site injury [Unknown]
  - Skin warm [Unknown]
  - Nodule [Unknown]
  - Drug hypersensitivity [Unknown]
  - Tooth discolouration [Unknown]
  - Wrong dose [Unknown]
  - Limb mass [Recovered/Resolved]
  - Off label use [Unknown]
  - Localised oedema [Recovering/Resolving]
  - Contusion [Unknown]
  - Pain [Unknown]
  - Oedema peripheral [Recovering/Resolving]
  - Erythema [Recovered/Resolved]
  - Flushing [Unknown]
  - Tooth disorder [Unknown]
  - Prescribed underdose [Unknown]
  - Body height increased [Unknown]
  - Treatment noncompliance [Unknown]
  - Malaise [Recovering/Resolving]
  - Puncture site pain [Recovered/Resolved]
  - Infusion site pain [Recovered/Resolved]
  - Poor venous access [Recovered/Resolved]
  - Weight increased [Unknown]
  - Restlessness [Recovered/Resolved]
  - Crying [Recovering/Resolving]
  - Toothache [Recovering/Resolving]
  - Dental discomfort [Not Recovered/Not Resolved]
  - Nervousness [Not Recovered/Not Resolved]
  - Coordination abnormal [Not Recovered/Not Resolved]
  - Gait disturbance [Recovered/Resolved]
  - Illness [Recovering/Resolving]
  - Rhinorrhoea [Recovering/Resolving]
  - Obstruction [Recovering/Resolving]
  - Feeling hot [Recovering/Resolving]
  - Psychomotor hyperactivity [Recovered/Resolved]
  - Insomnia [Recovered/Resolved]
  - Cardiac septal hypertrophy [Unknown]
  - Nasal congestion [Not Recovered/Not Resolved]
  - Fall [Recovering/Resolving]
  - Head injury [Recovering/Resolving]
  - Discomfort [Recovering/Resolving]
  - Hyperthermia [Recovered/Resolved]
  - Malpositioned teeth [Not Recovered/Not Resolved]
  - Teething [Not Recovered/Not Resolved]
  - Joint injury [Unknown]
  - Decreased appetite [Recovering/Resolving]
  - Fluid intake reduced [Recovering/Resolving]
  - Refusal of treatment by patient [Recovering/Resolving]
  - Product availability issue [Unknown]
  - Product dose omission issue [Unknown]
  - Product prescribing error [Unknown]
  - Incorrect dose administered [Recovered/Resolved]
  - Product administration error [Unknown]
  - Product use issue [Unknown]
  - Intentional product misuse to child [Unknown]
  - Inappropriate schedule of product administration [Unknown]
  - Insurance issue [Unknown]
  - Puncture site inflammation [Unknown]
  - Product distribution issue [Unknown]
  - Tremor [Recovered/Resolved]
  - Cough [Recovering/Resolving]
  - Diarrhoea [Recovering/Resolving]
  - Dyspnoea [Not Recovered/Not Resolved]

NARRATIVE: CASE EVENT DATE: 20200325
